FAERS Safety Report 21134964 (Version 4)
Quarter: 2025Q3

REPORT INFORMATION
  Report Type: Report from Study
  Country: CA (occurrence: CA)
  Receive Date: 20220727
  Receipt Date: 20250716
  Transmission Date: 20251020
  Serious: Yes (Death, Hospitalization, Other)
  Sender: GILEAD
  Company Number: CA-GLAXOSMITHKLINE-CA2022AMR109728

PATIENT
  Age: 71 Year
  Sex: Female

DRUGS (2)
  1. AMBRISENTAN [Suspect]
     Active Substance: AMBRISENTAN
     Indication: Pulmonary arterial hypertension
     Dosage: 10 MG, QD
     Route: 048
     Dates: start: 20210112
  2. AMBRISENTAN [Suspect]
     Active Substance: AMBRISENTAN
     Indication: Connective tissue disorder

REACTIONS (3)
  - Death [Fatal]
  - SARS-CoV-2 test positive [Recovering/Resolving]
  - COVID-19 [Recovering/Resolving]

NARRATIVE: CASE EVENT DATE: 20220701
